FAERS Safety Report 12799199 (Version 1)
Quarter: 2016Q3

REPORT INFORMATION
  Report Type: Spontaneous
  Country: BR (occurrence: BR)
  Receive Date: 20160930
  Receipt Date: 20160930
  Transmission Date: 20161109
  Serious: Yes (Death)
  Sender: FDA-Public Use
  Company Number: PHHY2016BR134058

PATIENT
  Sex: Female
  Weight: 68 kg

DRUGS (1)
  1. FORASEQ [Suspect]
     Active Substance: BUDESONIDE\FORMOTEROL FUMARATE
     Indication: EMPHYSEMA
     Dosage: 1 DF, QD (12/400 MCG, 60 + 60 CAPSULES, ONCE A DAY IN AFTERNOON)
     Route: 055
     Dates: start: 2012

REACTIONS (2)
  - Wrong technique in product usage process [Unknown]
  - Myocardial infarction [Fatal]

NARRATIVE: CASE EVENT DATE: 2012
